FAERS Safety Report 6800046-X (Version None)
Quarter: 2010Q2

REPORT INFORMATION
  Report Type: 
  Country: None (occurrence: None)
  Receive Date: 20100617
  Receipt Date: 20100611
  Transmission Date: 20101027
  Serious: No
  Sender: FDA-Public Use
  Company Number: 2010SP029470

PATIENT
  Age: 34 Year
  Sex: Female
  Weight: 57 kg

DRUGS (2)
  1. NUVARING [Suspect]
     Indication: CONTRACEPTION
     Dosage: VAG
     Route: 067
     Dates: start: 20091001, end: 20100101
  2. CETIRIZIN (CON.) [Concomitant]

REACTIONS (4)
  - ESCHERICHIA INFECTION [None]
  - PAIN [None]
  - PYELONEPHRITIS [None]
  - URINARY TRACT INFECTION [None]
